FAERS Safety Report 5088117-2 (Version None)
Quarter: 2006Q3

REPORT INFORMATION
  Report Type: 
  Country: None (occurrence: None)
  Receive Date: 20060821
  Receipt Date: 20060807
  Transmission Date: 20061208
  Serious: Yes (Hospitalization, Other)
  Sender: FDA-Public Use
  Company Number: 2005115227

PATIENT
  Age: 56 Year
  Sex: Male
  Weight: 72.5755 kg

DRUGS (4)
  1. BEXTRA [Suspect]
     Indication: ARTHRITIS
     Dosage: 20 MG (20 MG, 1 IN 1 D)
     Dates: start: 20030528, end: 20040214
  2. NORVASC [Concomitant]
  3. OXYCODONE HYDROCHLORIDE W/PARACETAMOL [Concomitant]
  4. DIAZEPAM [Concomitant]

REACTIONS (1)
  - CEREBROVASCULAR ACCIDENT [None]
